FAERS Safety Report 11465170 (Version 7)
Quarter: 2016Q3

REPORT INFORMATION
  Report Type: Report from Study
  Country: CA (occurrence: CA)
  Receive Date: 20150907
  Receipt Date: 20160707
  Transmission Date: 20161109
  Serious: Yes (Other)
  Sender: FDA-Public Use
  Company Number: CA-ROCHE-ITM201505IM015776

PATIENT
  Age: 50 Year
  Sex: Male
  Weight: 94 kg

DRUGS (11)
  1. VALSARTAN. [Concomitant]
     Active Substance: VALSARTAN
  2. ASPIRIN. [Concomitant]
     Active Substance: ASPIRIN
  3. ESBRIET [Suspect]
     Active Substance: PIRFENIDONE
     Route: 048
     Dates: start: 2015, end: 2016
  4. ESBRIET [Suspect]
     Active Substance: PIRFENIDONE
     Dosage: DOSE DECREASED FOR 3 DAYS
     Route: 048
     Dates: start: 201507
  5. ESBRIET [Suspect]
     Active Substance: PIRFENIDONE
     Route: 048
     Dates: start: 20150228
  6. DILTIAZEM. [Concomitant]
     Active Substance: DILTIAZEM
  7. ESBRIET [Suspect]
     Active Substance: PIRFENIDONE
     Indication: IDIOPATHIC PULMONARY FIBROSIS
     Route: 048
     Dates: start: 20150223
  8. ESBRIET [Suspect]
     Active Substance: PIRFENIDONE
     Dosage: MAINTENANCE DOSE
     Route: 048
     Dates: start: 2015
  9. VENTOLIN [Concomitant]
     Active Substance: ALBUTEROL SULFATE
  10. ESBRIET [Suspect]
     Active Substance: PIRFENIDONE
     Route: 048
     Dates: start: 201507
  11. TECTA [Concomitant]
     Active Substance: PANTOPRAZOLE MAGNESIUM

REACTIONS (8)
  - Fatigue [Unknown]
  - Secretion discharge [Not Recovered/Not Resolved]
  - Cough [Not Recovered/Not Resolved]
  - Nausea [Unknown]
  - Dyspnoea [Unknown]
  - Hypoxia [Unknown]
  - Headache [Unknown]
  - Headache [Unknown]

NARRATIVE: CASE EVENT DATE: 201504
